FAERS Safety Report 23367862 (Version 1)
Quarter: 2024Q1

REPORT INFORMATION
  Report Type: Report from Study
  Country: IL (occurrence: IL)
  Receive Date: 20240104
  Receipt Date: 20240104
  Transmission Date: 20240410
  Serious: Yes (Other)
  Sender: FDA-Public Use
  Company Number: IL-ABBVIE-5569977

PATIENT
  Sex: Male

DRUGS (1)
  1. HUMIRA [Suspect]
     Active Substance: ADALIMUMAB
     Indication: Psoriasis
     Route: 058

REACTIONS (3)
  - Metastatic malignant melanoma [Recovered/Resolved]
  - Metastatic malignant melanoma [Unknown]
  - Psoriasis [Unknown]

NARRATIVE: CASE EVENT DATE: 20220901
